FAERS Safety Report 19679624 (Version 1)
Quarter: 2021Q3

REPORT INFORMATION
  Report Type: Spontaneous
  Country: JP (occurrence: JP)
  Receive Date: 20210809
  Receipt Date: 20210809
  Transmission Date: 20211014
  Serious: Yes (Life-Threatening, Hospitalization, Other)
  Sender: FDA-Public Use
  Company Number: JP-009507513-2108JPN000432J

PATIENT
  Sex: Female

DRUGS (1)
  1. KEYTRUDA [Suspect]
     Active Substance: PEMBROLIZUMAB
     Indication: TRANSITIONAL CELL CARCINOMA
     Dosage: UNK, EVERY 6 WEEKS
     Route: 041
     Dates: end: 202104

REACTIONS (2)
  - Malignant neoplasm progression [Unknown]
  - Peritonitis [Unknown]

NARRATIVE: CASE EVENT DATE: 2021
